FAERS Safety Report 22395537 (Version 1)
Quarter: 2023Q2

REPORT INFORMATION
  Report Type: Spontaneous
  Country: US (occurrence: US)
  Receive Date: 20230601
  Receipt Date: 20230601
  Transmission Date: 20230722
  Serious: No
  Sender: FDA-Public Use
  Company Number: US-APIL-2311170US

PATIENT
  Sex: Female
  Weight: 63.956 kg

DRUGS (1)
  1. LILETTA [Suspect]
     Active Substance: LEVONORGESTREL
     Indication: Contraception
     Dosage: 52 MG, SINGLE
     Route: 015
     Dates: start: 20220424, end: 20230406

REACTIONS (6)
  - Urinary tract infection [Unknown]
  - Complication of device removal [Unknown]
  - Intermenstrual bleeding [Not Recovered/Not Resolved]
  - Abdominal pain [Not Recovered/Not Resolved]
  - Embedded device [Not Recovered/Not Resolved]
  - Device breakage [Unknown]
